FAERS Safety Report 6795535-0 (Version None)
Quarter: 2010Q2

REPORT INFORMATION
  Report Type: 
  Country: None (occurrence: None)
  Receive Date: 20100622
  Receipt Date: 20100609
  Transmission Date: 20101027
  Serious: Yes (Hospitalization, Congenital Anomaly)
  Sender: FDA-Public Use
  Company Number: LEO-2010-00424

PATIENT
  Sex: Female
  Weight: 2.52 kg

DRUGS (9)
  1. INNOHEP [Suspect]
     Indication: DRUG EXPOSURE DURING PREGNANCY
     Dosage: TRANSPLACENTAL
     Route: 064
     Dates: start: 20060120, end: 20060825
  2. PREDNISOLONE [Concomitant]
  3. RANITIDINE [Concomitant]
  4. PENICILLIN V [Concomitant]
  5. DICLOFENAC SODIUM [Concomitant]
  6. CODEINE PHOSPHATE AND ACETAMINOPHEN [Concomitant]
  7. PROZAC [Concomitant]
  8. FOLIC ACID [Concomitant]
  9. ASPIRIN [Concomitant]

REACTIONS (4)
  - CONGENITAL ANOMALY [None]
  - CONGENITAL CHOROID PLEXUS CYST [None]
  - MATERNAL DRUGS AFFECTING FOETUS [None]
  - PREMATURE BABY [None]
